FAERS Safety Report 9691244 (Version 1)
Quarter: 2013Q4

REPORT INFORMATION
  Report Type: Spontaneous
  Country: US (occurrence: US)
  Receive Date: 20131115
  Receipt Date: 20131115
  Transmission Date: 20140711
  Serious: No
  Sender: FDA-Public Use
  Company Number: US-BAUSCH-BL-2012-002221

PATIENT
  Age: 49 Year
  Sex: Female

DRUGS (1)
  1. BACITRACIN ZINC\HYDROCORTISONE ACETATE\NEOMYCIN SULFATE\POLYMYXIN B SULFATE [Suspect]
     Indication: ACCIDENTAL EXPOSURE TO PRODUCT
     Dosage: DOSAGE NOT SPECIFED
     Route: 047

REACTIONS (4)
  - Wrong technique in drug usage process [Unknown]
  - Breast atrophy [Not Recovered/Not Resolved]
  - Menstruation delayed [Not Recovered/Not Resolved]
  - Abnormal loss of weight [Recovered/Resolved]
